FAERS Safety Report 14524188 (Version 2)
Quarter: 2018Q1

REPORT INFORMATION
  Report Type: Spontaneous
  Country: FR (occurrence: FR)
  Receive Date: 20180213
  Receipt Date: 20180220
  Transmission Date: 20180509
  Serious: Yes (Hospitalization, Congenital Anomaly, Other)
  Sender: FDA-Public Use
  Company Number: FR-ABBVIE-18P-056-2252655-00

PATIENT
  Sex: Male

DRUGS (1)
  1. DEPAKINE CHRONO [Suspect]
     Active Substance: VALPROATE SODIUM
     Indication: MATERNAL EXPOSURE TIMING UNSPECIFIED
     Dosage: PROLONGED-RELEASE GRANULES
     Route: 064

REACTIONS (23)
  - Memory impairment [Unknown]
  - Speech disorder developmental [Unknown]
  - Foetal anticonvulsant syndrome [Unknown]
  - Nasopharyngitis [Unknown]
  - Disturbance in attention [Unknown]
  - Abnormal behaviour [Unknown]
  - Foetal exposure during pregnancy [Unknown]
  - Pectus excavatum [Unknown]
  - Conjunctivitis [Not Recovered/Not Resolved]
  - Congenital hand malformation [Not Recovered/Not Resolved]
  - Dysmorphism [Not Recovered/Not Resolved]
  - Congenital foot malformation [Not Recovered/Not Resolved]
  - Ear infection [Not Recovered/Not Resolved]
  - Dyspraxia [Unknown]
  - Psychomotor retardation [Unknown]
  - Learning disorder [Unknown]
  - Language disorder [Unknown]
  - Hypotonia [Not Recovered/Not Resolved]
  - Fatigue [Not Recovered/Not Resolved]
  - Congenital lacrimal passage anomaly [Unknown]
  - Attention deficit/hyperactivity disorder [Unknown]
  - Haemangioma [Not Recovered/Not Resolved]
  - Rhinitis [Not Recovered/Not Resolved]
